FAERS Safety Report 23377669 (Version 5)
Quarter: 2024Q4

REPORT INFORMATION
  Report Type: Report from Study
  Country: BR (occurrence: BR)
  Receive Date: 20240108
  Receipt Date: 20241203
  Transmission Date: 20250115
  Serious: Yes (Other)
  Sender: ABBVIE
  Company Number: BR-ABBVIE-5574401

PATIENT
  Age: 26 Year
  Sex: Female
  Weight: 108 kg

DRUGS (3)
  1. SKYRIZI [Suspect]
     Active Substance: RISANKIZUMAB-RZAA
     Indication: Psoriasis
     Dosage: FORM STRENGTH: 75MG
     Route: 058
     Dates: start: 20231211
  2. PURAN [Concomitant]
     Active Substance: LEVOTHYROXINE SODIUM
     Indication: Thyroid disorder
     Dosage: 25 MILLIGRAM
     Route: 048
     Dates: start: 202307
  3. GLIFAGE [Concomitant]
     Active Substance: METFORMIN HYDROCHLORIDE
     Indication: Diabetes mellitus
     Dosage: 2000 MILLIGRAM??FORM STRENGTH: 500 MG
     Route: 048
     Dates: start: 202210

REACTIONS (11)
  - Miosis [Unknown]
  - Obesity [Unknown]
  - Psoriasis [Recovering/Resolving]
  - Therapeutic product effect incomplete [Recovering/Resolving]
  - Scab [Recovering/Resolving]
  - Skin discolouration [Recovering/Resolving]
  - Product administered at inappropriate site [Recovered/Resolved]
  - Depression [Unknown]
  - Diabetes mellitus [Unknown]
  - Panic disorder [Unknown]
  - Bipolar disorder [Unknown]

NARRATIVE: CASE EVENT DATE: 20231201
